FAERS Safety Report 19564829 (Version 1)
Quarter: 2021Q3

REPORT INFORMATION
  Report Type: Spontaneous
  Country: CN (occurrence: CN)
  Receive Date: 20210714
  Receipt Date: 20210714
  Transmission Date: 20211014
  Serious: Yes (Other)
  Sender: FDA-Public Use
  Company Number: CN-ASTRAZENECA-2021A611946

PATIENT
  Age: 23741 Day
  Sex: Male
  Weight: 85 kg

DRUGS (1)
  1. FORXIGA [Suspect]
     Active Substance: DAPAGLIFLOZIN
     Indication: BLOOD GLUCOSE
     Route: 048
     Dates: start: 20210618, end: 20210620

REACTIONS (5)
  - Hydrocele [Recovered/Resolved]
  - Balanoposthitis [Recovered/Resolved]
  - Pollakiuria [Recovered/Resolved]
  - Micturition urgency [Recovered/Resolved]
  - Scrotal inflammation [Recovered/Resolved]

NARRATIVE: CASE EVENT DATE: 20210620
